FAERS Safety Report 6424221-1 (Version None)
Quarter: 2009Q4

REPORT INFORMATION
  Report Type: 
  Country: None (occurrence: None)
  Receive Date: 20091102
  Receipt Date: 20091030
  Transmission Date: 20100525
  Serious: Yes (Life-Threatening, Other)
  Sender: FDA-Public Use
  Company Number: US-GENENTECH-292035

PATIENT
  Sex: Male
  Weight: 86.168 kg

DRUGS (1)
  1. XOLAIR [Suspect]
     Indication: ASTHMA
     Dosage: 225 MG, Q2W
     Route: 058
     Dates: start: 20090721, end: 20090804

REACTIONS (3)
  - ASTHMA [None]
  - THROAT TIGHTNESS [None]
  - WHEEZING [None]
